FAERS Safety Report 8862629 (Version 1)
Quarter: 2012Q4

REPORT INFORMATION
  Report Type: 
  Country: US (occurrence: US)
  Receive Date: 20121026
  Receipt Date: 20121026
  Transmission Date: 20130627
  Serious: No
  Sender: FDA-Public Use
  Company Number: US-B.I. PHARMACEUTICALS,INC./RIDGEFIELD-2012-BP-26029BP

PATIENT
  Sex: Male
  Weight: 79 kg

DRUGS (19)
  1. SPIRIVA [Suspect]
     Indication: CHRONIC OBSTRUCTIVE PULMONARY DISEASE
     Dosage: 18 mcg
     Route: 055
     Dates: start: 2011
  2. GLUCOSAMINE [Concomitant]
     Indication: ARTHRALGIA
     Dosage: 1000 mg
     Route: 048
  3. ASPIRIN [Concomitant]
     Dosage: 81 mg
     Route: 048
  4. CARVEDILOL [Concomitant]
     Indication: HYPERTENSION
     Route: 048
  5. GLYBURIDE [Concomitant]
     Indication: BLOOD GLUCOSE INCREASED
     Route: 048
  6. JANUVIA [Concomitant]
     Indication: BLOOD GLUCOSE INCREASED
     Route: 048
  7. VITAMIN B [Concomitant]
     Indication: SUPPLEMENTATION THERAPY
     Route: 048
  8. FLOGARD [Concomitant]
     Indication: SUPPLEMENTATION THERAPY
     Route: 048
  9. BUMETANIDE [Concomitant]
     Indication: DIURETIC THERAPY
     Route: 048
  10. BUMETANIDE [Concomitant]
     Indication: HYPERTENSION
  11. LIPITOR [Concomitant]
     Indication: BLOOD CHOLESTEROL INCREASED
     Route: 048
  12. CALCIUM + D [Concomitant]
     Indication: SUPPLEMENTATION THERAPY
     Route: 048
  13. HYTRIN [Concomitant]
     Indication: PROSTATOMEGALY
     Route: 048
  14. STOOL SOFTENER [Concomitant]
     Route: 048
  15. NEURONTIN [Concomitant]
     Indication: PARAESTHESIA
     Route: 048
  16. ADVAIR [Concomitant]
     Indication: DYSPNOEA
     Route: 055
  17. PROAIR HFA [Concomitant]
     Indication: DYSPNOEA
     Route: 055
  18. NITROGLYCERIN [Concomitant]
     Route: 048
  19. MIRALAX [Concomitant]
     Route: 048

REACTIONS (1)
  - Visual acuity reduced [Not Recovered/Not Resolved]
